FAERS Safety Report 6275140-5 (Version None)
Quarter: 2009Q3

REPORT INFORMATION
  Report Type: 
  Country: None (occurrence: None)
  Receive Date: 20090721
  Receipt Date: 20090714
  Transmission Date: 20100115
  Serious: Yes (Other)
  Sender: FDA-Public Use
  Company Number: US-BAYER-200914420NA

PATIENT
  Age: 58 Year
  Sex: Male

DRUGS (11)
  1. NEXAVAR [Suspect]
     Indication: GASTROINTESTINAL STROMAL TUMOUR
     Dosage: TOTAL DAILY DOSE: 800 MG  UNIT DOSE: 200 MG
     Route: 048
     Dates: start: 20090214
  2. ACTOS [Concomitant]
  3. ASPIRIN [Concomitant]
  4. GLYBURIDE [Concomitant]
  5. FERROUS GLUCONATE [Concomitant]
  6. METFORMIN [Concomitant]
  7. LESCOL [Concomitant]
  8. LEVOTHYROXINE SODIUM [Concomitant]
  9. TRICOR [Concomitant]
  10. VITAMIN B-12 [Concomitant]
  11. DESOXIMETASONE [Concomitant]

REACTIONS (5)
  - BLOOD PRESSURE INCREASED [None]
  - ERYTHEMA [None]
  - MELANOCYTIC NAEVUS [None]
  - MUSCLE SPASMS [None]
  - PAIN IN EXTREMITY [None]
